FAERS Safety Report 6220402-0 (Version None)
Quarter: 2009Q2

REPORT INFORMATION
  Report Type: 
  Country: None (occurrence: None)
  Receive Date: 20090610
  Receipt Date: 20090601
  Transmission Date: 20091009
  Serious: Yes (Death, Life-Threatening, Hospitalization)
  Sender: FDA-Public Use
  Company Number: US-ELI_LILLY_AND_COMPANY-US200905002799

PATIENT
  Sex: Male

DRUGS (20)
  1. PEMETREXED [Suspect]
     Indication: NON-SMALL CELL LUNG CANCER
     Dosage: 500 MG/M2, OTHER
     Route: 042
     Dates: start: 20080731, end: 20090409
  2. AVASTIN [Concomitant]
  3. FOLIC ACID [Concomitant]
     Indication: VITAMIN SUPPLEMENTATION
     Dosage: 1 MG, DAILY (1/D)
     Route: 048
     Dates: start: 20080731
  4. VITAMIN B-12 [Concomitant]
     Indication: VITAMIN SUPPLEMENTATION
     Dosage: UNK, UNK
     Dates: start: 20080731
  5. DEXAMETHASONE [Concomitant]
     Dosage: UNK, UNK
     Dates: start: 20080731
  6. ADVAIR HFA [Concomitant]
     Dosage: UNK, 2/D
     Route: 055
     Dates: end: 20090501
  7. ALBUTEROL [Concomitant]
     Dosage: UNK, EVERY 4 HRS
     Route: 055
     Dates: end: 20090501
  8. COLCHICINE [Concomitant]
     Dosage: 0.6 MG, 2/D
     Route: 048
  9. COZAAR [Concomitant]
     Dosage: 100 MG, DAILY (1/D)
     Route: 048
     Dates: end: 20090501
  10. COREG [Concomitant]
     Dosage: 6.25 MG, DAILY (1/D)
     Route: 048
     Dates: end: 20090501
  11. DESYREL [Concomitant]
     Dosage: 100 MG, DAILY (1/D)
     Route: 048
     Dates: end: 20090501
  12. NEURONTIN [Concomitant]
     Dosage: 300 MG, 2/D
     Route: 048
     Dates: end: 20090501
  13. LEVEMIR [Concomitant]
     Dosage: 10 U, EACH EVENING
     Route: 058
     Dates: end: 20090501
  14. LEXAPRO [Concomitant]
     Dosage: 20 MG, DAILY (1/D)
     Route: 048
     Dates: end: 20090501
  15. LIDODERM [Concomitant]
     Dosage: UNK, DAILY (1/D)
     Route: 061
     Dates: end: 20090501
  16. MEGACE [Concomitant]
     Dosage: 625 MG, DAILY (1/D)
     Route: 048
     Dates: end: 20090501
  17. OXYCONTIN [Concomitant]
     Dosage: 30 MG, 3/D
     Route: 048
     Dates: end: 20090501
  18. PERCOCET [Concomitant]
     Dosage: 10 MG, EVERY 6 HRS
     Route: 048
     Dates: end: 20090501
  19. POTASSIUM CHLORIDE [Concomitant]
     Dosage: 20 MEQ, DAILY (1/D)
     Route: 048
     Dates: end: 20090501
  20. TIZANIDINE HCL [Concomitant]
     Dosage: 4 MG, EACH EVENING
     Route: 048
     Dates: end: 20090501

REACTIONS (3)
  - CEREBROVASCULAR ACCIDENT [None]
  - PANCYTOPENIA [None]
  - SEPSIS [None]
